FAERS Safety Report 14142351 (Version 2)
Quarter: 2018Q1

REPORT INFORMATION
  Report Type: Spontaneous
  Country: FR (occurrence: FR)
  Receive Date: 20171030
  Receipt Date: 20180103
  Transmission Date: 20180508
  Serious: Yes (Hospitalization)
  Sender: FDA-Public Use
  Company Number: FR-PFIZER INC-2017461732

PATIENT
  Age: 78 Year
  Sex: Male
  Weight: 71 kg

DRUGS (13)
  1. IMIPENEM CILASTATIN PANPHARMA [Suspect]
     Active Substance: CILASTATIN SODIUM\IMIPENEM
     Indication: POSTOPERATIVE WOUND INFECTION
     Dosage: 500 MG, 4X/DAY
     Route: 041
     Dates: start: 20171002, end: 20171006
  2. MAGNE B6 [Concomitant]
     Active Substance: MAGNESIUM\PYRIDOXINE
     Dosage: UNK
  3. FUROSEMIDE. [Concomitant]
     Active Substance: FUROSEMIDE
     Dosage: UNK
  4. NEGABAN [Suspect]
     Active Substance: TEMOCILLIN
     Indication: POSTOPERATIVE WOUND INFECTION
     Dosage: 4 G, 2X/DAY
     Route: 041
     Dates: start: 20171006, end: 20171007
  5. FRAGMINE [Concomitant]
     Active Substance: DALTEPARIN SODIUM
     Dosage: UNK
  6. TYGACIL [Suspect]
     Active Substance: TIGECYCLINE
     Indication: POSTOPERATIVE WOUND INFECTION
     Dosage: 50 MG, 2X/DAY
     Route: 041
     Dates: start: 20171007
  7. AMLODIPINE [Concomitant]
     Active Substance: AMLODIPINE BESYLATE
     Dosage: UNK
  8. PANTOPRAZOLE [Concomitant]
     Active Substance: PANTOPRAZOLE
     Dosage: UNK
  9. SALBUTAMOL [Concomitant]
     Active Substance: ALBUTEROL
     Dosage: UNK
  10. FOSFOCINA /00552501/ [Suspect]
     Active Substance: FOSFOMYCIN
     Indication: POSTOPERATIVE WOUND INFECTION
     Dosage: 1 DF, 1X/DAY
     Route: 041
     Dates: start: 20171002, end: 20171006
  11. XATRAL [Concomitant]
     Active Substance: ALFUZOSIN
     Dosage: UNK
  12. DOMPERIDONE [Concomitant]
     Active Substance: DOMPERIDONE
     Dosage: UNK
  13. PARACETAMOL [Concomitant]
     Active Substance: ACETAMINOPHEN
     Dosage: UNK

REACTIONS (3)
  - Pruritus [Recovered/Resolved]
  - Rash [Recovered/Resolved]
  - Oedema peripheral [Recovered/Resolved]

NARRATIVE: CASE EVENT DATE: 20171007
